FAERS Safety Report 6299159-3 (Version None)
Quarter: 2009Q3

REPORT INFORMATION
  Report Type: 
  Country: None (occurrence: None)
  Receive Date: 20090806
  Receipt Date: 20090727
  Transmission Date: 20100115
  Serious: Yes (Death)
  Sender: FDA-Public Use
  Company Number: ES-JNJFOC-20070501259

PATIENT
  Age: 72 Year
  Sex: Male

DRUGS (5)
  1. INFLIXIMAB [Suspect]
     Indication: RHEUMATOID ARTHRITIS
     Route: 042
  2. GLUCOCORTICOIDS [Concomitant]
  3. LEFLUNOMIDE [Concomitant]
  4. ASPIRIN [Concomitant]
  5. BENZODIAZEPINES NOS [Concomitant]

REACTIONS (1)
  - PULMONARY TUBERCULOSIS [None]
